FAERS Safety Report 7308421-4 (Version None)
Quarter: 2011Q1

REPORT INFORMATION
  Report Type: 
  Country: None (occurrence: None)
  Receive Date: 20110211
  Receipt Date: 20110128
  Transmission Date: 20110831
  Serious: Yes (Hospitalization)
  Sender: FDA-Public Use
  Company Number: LEO-2011-00146

PATIENT
  Age: 57 Year
  Sex: Female

DRUGS (5)
  1. WARFARIN SODIUM [Suspect]
     Indication: EMBOLISM VENOUS
     Dosage: 3 MG (3 MG,1 IN 1 D),ORAL ; 1 MG (1 MG,1 IN 1 D),ORAL
     Route: 048
     Dates: start: 20101030
  2. WARFARIN SODIUM [Suspect]
     Indication: EMBOLISM VENOUS
     Dosage: 3 MG (3 MG,1 IN 1 D),ORAL ; 1 MG (1 MG,1 IN 1 D),ORAL
     Route: 048
     Dates: end: 20110127
  3. ULTRACET (PARACETAMOL, TRAMADOL HYDROCHLORIDE) (TABLETS) [Concomitant]
  4. INNOHEP [Suspect]
     Indication: EMBOLISM VENOUS
     Dosage: 14000 IU (14000 IU,1 IN 1 D),SUBCUTANEOUS
     Route: 058
     Dates: start: 20101030, end: 20101107
  5. BETAHISTINE DIHYDROCHLORIDE (BETAHISTINE HYDROCHLORIDE) [Concomitant]

REACTIONS (8)
  - FAECES DISCOLOURED [None]
  - RECTAL HAEMORRHAGE [None]
  - SUPRAVENTRICULAR TACHYCARDIA [None]
  - BLOOD POTASSIUM DECREASED [None]
  - SYNCOPE [None]
  - HAEMATOCRIT DECREASED [None]
  - BLOOD MAGNESIUM DECREASED [None]
  - HAEMOGLOBIN DECREASED [None]
